FAERS Safety Report 9133751 (Version 1)
Quarter: 2013Q1

REPORT INFORMATION
  Report Type: Spontaneous
  Country: US (occurrence: US)
  Receive Date: 20130302
  Receipt Date: 20130302
  Transmission Date: 20140127
  Serious: No
  Sender: FDA-Public Use
  Company Number: US-ENDO PHARMACEUTICALS INC.-DELA20110005

PATIENT
  Age: 18 Year
  Sex: Male

DRUGS (1)
  1. DELATESTRYL [Suspect]
     Indication: ANDROGEN DEFICIENCY
     Route: 030
     Dates: start: 201106

REACTIONS (1)
  - Myalgia [Not Recovered/Not Resolved]
